FAERS Safety Report 6201019-0 (Version None)
Quarter: 2009Q2

REPORT INFORMATION
  Report Type: 
  Country: None (occurrence: None)
  Receive Date: 20090526
  Receipt Date: 20090515
  Transmission Date: 20091009
  Serious: Yes (Hospitalization)
  Sender: FDA-Public Use
  Company Number: JP-ELI_LILLY_AND_COMPANY-JP200905004655

PATIENT
  Sex: Male

DRUGS (2)
  1. HUMALOG [Suspect]
     Route: 058
  2. LANTUS [Concomitant]
     Route: 058

REACTIONS (1)
  - HOSPITALISATION [None]
